FAERS Safety Report 11417002 (Version 3)
Quarter: 2015Q4

REPORT INFORMATION
  Report Type: Spontaneous
  Country: US (occurrence: US)
  Receive Date: 20150825
  Receipt Date: 20151123
  Transmission Date: 20160304
  Serious: Yes (Hospitalization)
  Sender: FDA-Public Use
  Company Number: US-BAYER-2015-407147

PATIENT
  Age: 42 Year
  Sex: Female
  Weight: 81.63 kg

DRUGS (5)
  1. CIPROFLOXACIN. [Concomitant]
     Active Substance: CIPROFLOXACIN
  2. FLONASE [Concomitant]
     Active Substance: FLUTICASONE PROPIONATE
  3. MIRENA [Suspect]
     Active Substance: LEVONORGESTREL
     Indication: CONTRACEPTION
     Dosage: 20 MCG/24HR, CONT
     Route: 015
     Dates: start: 20080722, end: 20140114
  4. WELLBUTRIN [Concomitant]
     Active Substance: BUPROPION HYDROCHLORIDE
  5. VITAMIN D [Concomitant]
     Active Substance: CHOLECALCIFEROL

REACTIONS (8)
  - Injury [None]
  - Device dislocation [None]
  - Uterine perforation [None]
  - Anxiety [None]
  - Intentional device misuse [None]
  - Device difficult to use [None]
  - Pain [None]
  - Emotional distress [None]

NARRATIVE: CASE EVENT DATE: 201308
